FAERS Safety Report 6368565-0 (Version None)
Quarter: 2009Q3

REPORT INFORMATION
  Report Type: 
  Country: None (occurrence: None)
  Receive Date: 20090922
  Receipt Date: 20090108
  Transmission Date: 20100115
  Serious: No
  Sender: FDA-Public Use
  Company Number: US-BRISTOL-MYERS SQUIBB COMPANY-14435283

PATIENT
  Age: 28 Year
  Sex: Male

DRUGS (3)
  1. BUSPAR [Suspect]
     Indication: ANXIETY
     Dosage: DURATION:1 YEAR AGO
     Route: 048
     Dates: start: 20070620, end: 20081113
  2. LEXAPRO [Concomitant]
     Indication: DEPRESSION
  3. BUPROPION HCL [Concomitant]
     Indication: DEPRESSION

REACTIONS (1)
  - NEPHROLITHIASIS [None]
